FAERS Safety Report 8166338-X (Version None)
Quarter: 2012Q1

REPORT INFORMATION
  Report Type: 
  Country: None (occurrence: None)
  Receive Date: 20120227
  Receipt Date: 20110707
  Transmission Date: 20120608
  Serious: No
  Sender: FDA-Public Use
  Company Number: US-MYLANLABS-2011S1012448

PATIENT
  Age: 33 Year
  Sex: Female
  Weight: 72.58 kg

DRUGS (11)
  1. PROTONIX [Concomitant]
  2. TRILEPTAL [Concomitant]
  3. SYNTHROID [Concomitant]
  4. SEASONIQUE [Concomitant]
  5. CLARAVIS [Suspect]
     Indication: ACNE
     Route: 048
     Dates: start: 20110520
  6. XANAX [Concomitant]
  7. SYMBICORT [Concomitant]
  8. AMNESTEEM [Suspect]
     Indication: ACNE
     Route: 048
  9. PHENERMINE [Concomitant]
  10. ZOLOFT [Concomitant]
  11. MORPHINE SULFATE [Concomitant]

REACTIONS (3)
  - PAIN [None]
  - ADVERSE EVENT [None]
  - DEPRESSION [None]
